FAERS Safety Report 7476809-7 (Version None)
Quarter: 2011Q2

REPORT INFORMATION
  Report Type: 
  Country: None (occurrence: None)
  Receive Date: 20110512
  Receipt Date: 20110504
  Transmission Date: 20111010
  Serious: Yes (Disabling, Other)
  Sender: FDA-Public Use
  Company Number: AU-ABBOTT-10P-008-0658384-00

PATIENT
  Sex: Male
  Weight: 103 kg

DRUGS (3)
  1. HUMIRA [Suspect]
     Indication: RHEUMATOID ARTHRITIS
     Dosage: 40MG FORTNIGHTLY
     Route: 058
     Dates: start: 20100203, end: 20100626
  2. METHOTREXATE [Concomitant]
     Indication: PRODUCT USED FOR UNKNOWN INDICATION
  3. SULFASALAZINE [Concomitant]
     Indication: PRODUCT USED FOR UNKNOWN INDICATION

REACTIONS (3)
  - DEMYELINATION [None]
  - NERVOUS SYSTEM DISORDER [None]
  - PARAESTHESIA [None]
